FAERS Safety Report 21663576 (Version 1)
Quarter: 2022Q4

REPORT INFORMATION
  Report Type: Spontaneous
  Country: US (occurrence: None)
  Receive Date: 20221130
  Receipt Date: 20221130
  Transmission Date: 20230113
  Serious: No
  Sender: FDA-Public Use
  Company Number: 2022A364158

PATIENT
  Sex: Female
  Weight: 31.8 kg

DRUGS (2)
  1. SYMBICORT [Suspect]
     Active Substance: BUDESONIDE\FORMOTEROL FUMARATE DIHYDRATE
     Indication: Asthma
     Route: 055
     Dates: start: 202210
  2. FLONASE [Concomitant]
     Active Substance: FLUTICASONE PROPIONATE
     Indication: Hypersensitivity

REACTIONS (6)
  - Rash [Unknown]
  - Device use issue [Unknown]
  - Off label use [Unknown]
  - Device malfunction [Unknown]
  - Device issue [Unknown]
  - Incorrect dose administered [Unknown]
